FAERS Safety Report 5310011-X (Version None)
Quarter: 2007Q2

REPORT INFORMATION
  Report Type: 
  Country: None (occurrence: None)
  Receive Date: 20070427
  Receipt Date: 20070424
  Transmission Date: 20071010
  Serious: Yes (Hospitalization, Disabling)
  Sender: FDA-Public Use
  Company Number: US-ROCHE-480239

PATIENT
  Age: 46 Year
  Sex: Female
  Weight: 84.8 kg

DRUGS (2)
  1. PEGASYS [Suspect]
     Indication: HEPATITIS C
     Route: 058
     Dates: start: 20061227, end: 20070112
  2. CLOZAPINE [Suspect]
     Indication: BIPOLAR DISORDER
     Route: 065
     Dates: start: 19940615, end: 20070115

REACTIONS (6)
  - BIPOLAR DISORDER [None]
  - GRANULOCYTOPENIA [None]
  - INFLUENZA LIKE ILLNESS [None]
  - LEUKOPENIA [None]
  - SCHIZOPHRENIA [None]
  - THROMBOCYTOPENIA [None]
